FAERS Safety Report 8139597-7 (Version None)
Quarter: 2012Q1

REPORT INFORMATION
  Report Type: 
  Country: None (occurrence: None)
  Receive Date: 20120215
  Receipt Date: 20120202
  Transmission Date: 20120608
  Serious: Yes (Other)
  Sender: FDA-Public Use
  Company Number: PHHY2012HU009743

PATIENT
  Age: 2 Year
  Sex: Female

DRUGS (1)
  1. IMATINIB MESYLATE [Suspect]
     Route: 064

REACTIONS (2)
  - CARDIAC SEPTAL DEFECT [None]
  - FOETAL EXPOSURE TIMING UNSPECIFIED [None]
